FAERS Safety Report 6764032-0 (Version None)
Quarter: 2010Q2

REPORT INFORMATION
  Report Type: 
  Country: None (occurrence: None)
  Receive Date: 20100610
  Receipt Date: 20091124
  Transmission Date: 20101027
  Serious: No
  Sender: FDA-Public Use
  Company Number: US-ASTRAZENECA-2009SE28624

PATIENT
  Sex: Female

DRUGS (1)
  1. FASLODEX [Suspect]
     Indication: BREAST CANCER METASTATIC
     Route: 030
     Dates: start: 20091110

REACTIONS (5)
  - CHILLS [None]
  - MUSCLE DISORDER [None]
  - MYALGIA [None]
  - PYREXIA [None]
  - SNEEZING [None]
